FAERS Safety Report 6832491-0 (Version None)
Quarter: 2010Q3

REPORT INFORMATION
  Report Type: 
  Country: None (occurrence: None)
  Receive Date: 20100712
  Receipt Date: 20100702
  Transmission Date: 20110219
  Serious: Yes (Hospitalization)
  Sender: FDA-Public Use
  Company Number: GB-WATSON-2010-08805

PATIENT
  Age: 24 Year
  Sex: Female

DRUGS (6)
  1. LAMOTRIGINE [Suspect]
     Indication: PSYCHOTIC DISORDER
     Dosage: 4200 MG, SINGLE
     Route: 048
     Dates: start: 20070301, end: 20070301
  2. LAMOTRIGINE [Suspect]
     Indication: DEPRESSION
     Dosage: 100 MG, BID
     Route: 065
  3. RISPERIDONE [Concomitant]
     Indication: DEPRESSION
     Dosage: 2 MG, BID
     Route: 065
  4. RISPERIDONE [Concomitant]
     Indication: PSYCHOTIC DISORDER
  5. MIRTAZAPINE [Concomitant]
     Indication: DEPRESSION
     Dosage: 30 MG, DAILY
  6. MIRTAZAPINE [Concomitant]
     Indication: PSYCHOTIC DISORDER

REACTIONS (14)
  - ABDOMINAL PAIN UPPER [None]
  - ALTERED STATE OF CONSCIOUSNESS [None]
  - ATAXIA [None]
  - DEHYDRATION [None]
  - DYSARTHRIA [None]
  - INTENTIONAL OVERDOSE [None]
  - INTENTIONAL SELF-INJURY [None]
  - LETHARGY [None]
  - METABOLIC ACIDOSIS [None]
  - NYSTAGMUS [None]
  - PANCREATITIS ACUTE [None]
  - SINUS TACHYCARDIA [None]
  - TACHYCARDIA [None]
  - VOMITING [None]
